FAERS Safety Report 7001388-8 (Version None)
Quarter: 2010Q3

REPORT INFORMATION
  Report Type: 
  Country: None (occurrence: None)
  Receive Date: 20100920
  Receipt Date: 20100415
  Transmission Date: 20110219
  Serious: No
  Sender: FDA-Public Use
  Company Number: US-ASTRAZENECA-2010SE04137

PATIENT
  Age: 35 Year
  Sex: Female
  Weight: 69.9 kg

DRUGS (1)
  1. SEROQUEL [Suspect]
     Indication: DISSOCIATIVE DISORDER
     Route: 048
     Dates: start: 20040101, end: 20080101

REACTIONS (5)
  - BLOOD CHOLESTEROL INCREASED [None]
  - BLOOD TRIGLYCERIDES INCREASED [None]
  - HYPERLIPIDAEMIA [None]
  - OBESITY [None]
  - TYPE 2 DIABETES MELLITUS [None]
